FAERS Safety Report 9835031 (Version 1)
Quarter: 2014Q1

REPORT INFORMATION
  Report Type: Spontaneous
  Country: US (occurrence: US)
  Receive Date: 20140122
  Receipt Date: 20140122
  Transmission Date: 20141002
  Serious: No
  Sender: FDA-Public Use
  Company Number: US-ACORDA-ACO_36534_2013

PATIENT
  Age: 70 Year
  Sex: Female
  Weight: 77.98 kg

DRUGS (1)
  1. ZANAFLEX TABLETS [Suspect]
     Indication: MUSCLE SPASMS
     Dosage: 4 MG, UNK
     Route: 048
     Dates: start: 20130526, end: 20130526

REACTIONS (1)
  - Dry mouth [Recovered/Resolved]
